FAERS Safety Report 18561680 (Version 2)
Quarter: 2021Q1

REPORT INFORMATION
  Report Type: Other
  Country: CA (occurrence: CA)
  Receive Date: 20201201
  Receipt Date: 20210119
  Transmission Date: 20210419
  Serious: Yes (Other)
  Sender: FDA-Public Use
  Company Number: CA-CELLTRION INC.-2020CA032570

PATIENT

DRUGS (6)
  1. RITUXIMAB (UNKNOWN) [Suspect]
     Active Substance: RITUXIMAB
     Indication: LYMPHOMA
     Dosage: 1400.0 MG, 1 EVERY 28 DAYS
     Route: 065
  2. DOCOSAHEXAENOIC ACID;EICOSAPENTAENOIC ACID [Concomitant]
     Active Substance: DOCONEXENT\ICOSAPENT
  3. AMITRIPTYLINE [Concomitant]
     Active Substance: AMITRIPTYLINE
  4. GARLIC [ALLIUM SATIVUM] [Concomitant]
     Active Substance: GARLIC
  5. INDAPAMIDE;PERINDOPRIL ERBUMINE [Concomitant]
     Active Substance: INDAPAMIDE\PERINDOPRIL ERBUMINE
  6. VITAMIN C [Concomitant]
     Active Substance: ASCORBIC ACID

REACTIONS (8)
  - Erythema [Unknown]
  - Abdominal distension [Unknown]
  - Sleep disorder [Unknown]
  - Injection site erythema [Unknown]
  - Skin swelling [Unknown]
  - Overdose [Unknown]
  - Injection site reaction [Unknown]
  - Pain [Unknown]
